FAERS Safety Report 12796779 (Version 1)
Quarter: 2016Q3

REPORT INFORMATION
  Report Type: Spontaneous
  Country: NO (occurrence: NO)
  Receive Date: 20160929
  Receipt Date: 20160929
  Transmission Date: 20161109
  Serious: Yes (Disabling)
  Sender: FDA-Public Use
  Company Number: NO-009507513-1609NOR011312

PATIENT
  Age: 53 Year
  Sex: Male
  Weight: 75 kg

DRUGS (2)
  1. FOSAMAX [Suspect]
     Active Substance: ALENDRONATE SODIUM
     Indication: BONE DISORDER
     Dosage: 70 MG, QW
     Route: 048
     Dates: start: 20140809, end: 20140809
  2. CALCIGRAN FORTE [Concomitant]
     Dosage: WERE USED SIMULTANEOUSLY WITH FOSAMAX IN 10 MONTHS. THE CALCI HAS SETTLED ON IN THE DESCRIBED AREAS.
     Dates: start: 20140908

REACTIONS (2)
  - Joint dislocation [Not Recovered/Not Resolved]
  - Calcification of muscle [Not Recovered/Not Resolved]

NARRATIVE: CASE EVENT DATE: 20140809
